FAERS Safety Report 17203130 (Version 1)
Quarter: 2019Q4

REPORT INFORMATION
  Report Type: Spontaneous
  Country: US (occurrence: US)
  Receive Date: 20191226
  Receipt Date: 20191226
  Transmission Date: 20200122
  Serious: Yes (Hospitalization)
  Sender: FDA-Public Use
  Company Number: US-ASTRAZENECA-2019SF86544

PATIENT
  Age: 198 Day
  Sex: Female

DRUGS (2)
  1. SYNAGIS [Suspect]
     Active Substance: PALIVIZUMAB
     Indication: HAEMANGIOMA
     Route: 030
     Dates: start: 201911
  2. SYNAGIS [Suspect]
     Active Substance: PALIVIZUMAB
     Indication: HAEMANGIOMA
     Route: 030
     Dates: start: 201911

REACTIONS (1)
  - Gastric disorder [Unknown]

NARRATIVE: CASE EVENT DATE: 20191202
